FAERS Safety Report 20328103 (Version 1)
Quarter: 2022Q1

REPORT INFORMATION
  Report Type: Spontaneous
  Country: US (occurrence: US)
  Receive Date: 20220112
  Receipt Date: 20220112
  Transmission Date: 20220423
  Serious: Yes (Other)
  Sender: FDA-Public Use
  Company Number: US-PFIZER INC-202200021992

PATIENT

DRUGS (1)
  1. METAXALONE [Suspect]
     Active Substance: METAXALONE
     Dosage: UNK

REACTIONS (2)
  - Psoriatic arthropathy [Unknown]
  - Ankylosing spondylitis [Unknown]
